FAERS Safety Report 17272789 (Version 4)
Quarter: 2020Q1

REPORT INFORMATION
  Report Type: Spontaneous
  Country: JP (occurrence: JP)
  Receive Date: 20200115
  Receipt Date: 20200313
  Transmission Date: 20200409
  Serious: Yes (Hospitalization)
  Sender: FDA-Public Use
  Company Number: JP-ASTRAZENECA-2020SE05546

PATIENT
  Age: 75 Year
  Sex: Male
  Weight: 72 kg

DRUGS (23)
  1. URSO [Concomitant]
     Active Substance: URSODIOL
     Dosage: NUMBER OF SEPARATE DOSAGES UNKNOWN 300 MG
     Route: 048
  2. FOSAMAC [Concomitant]
     Active Substance: ALENDRONATE SODIUM
     Route: 048
  3. FUROSEMIDE. [Concomitant]
     Active Substance: FUROSEMIDE
     Route: 048
  4. ALLOPURINOL. [Concomitant]
     Active Substance: ALLOPURINOL
     Dosage: 100 MG, NUMBER OF SEPARATE DOSAGES A DAY UNKNOWN
     Route: 048
  5. THYRADIN S [Concomitant]
     Active Substance: LEVOTHYROXINE SODIUM
     Route: 065
  6. DEPAKENE-R [Concomitant]
     Active Substance: VALPROATE SODIUM
     Dosage: 100 MG, NUMBER OF SEPARATE DOSAGES A DAY UNKNOWN
     Route: 065
  7. EDOXABAN TOSILATE HYDRATE [Concomitant]
     Active Substance: EDOXABAN TOSYLATE
     Indication: ATRIAL FIBRILLATION
     Route: 065
     Dates: start: 20180227, end: 20180403
  8. EDOXABAN TOSILATE HYDRATE [Concomitant]
     Active Substance: EDOXABAN TOSYLATE
     Indication: ATRIAL FIBRILLATION
     Route: 048
     Dates: start: 20190602
  9. LIXIANA OD [Concomitant]
     Active Substance: EDOXABAN TOSYLATE
     Dosage: 60 MG NUMBER OF SEPARATE DOSAGES UNKNOWN
     Route: 048
  10. SPIRONOLACTONE. [Concomitant]
     Active Substance: SPIRONOLACTONE
     Dosage: 25 MG NUMBER OF SEPARATE DOSAGES A DAY UNKNOWN
     Route: 048
  11. GLACTIV [Concomitant]
     Active Substance: SITAGLIPTIN
     Dosage: 25 MG, NUMBER OF SEPARATE DOSAGES A DAY UNKNOWN
     Route: 048
  12. EDOXABAN TOSILATE HYDRATE [Concomitant]
     Active Substance: EDOXABAN TOSYLATE
     Indication: ATRIAL FIBRILLATION
     Route: 065
     Dates: end: 20190601
  13. MAINTATE [Concomitant]
     Active Substance: BISOPROLOL FUMARATE
     Route: 048
  14. LOXOPROFEN [Concomitant]
     Active Substance: LOXOPROFEN
     Dosage: 60 MG, NUMBER OF SEPARATE DOSAGES A DAY UNKNOWN
     Route: 048
  15. BROTIZOLAM OD [Concomitant]
  16. EDOXABAN TOSILATE HYDRATE [Concomitant]
     Active Substance: EDOXABAN TOSYLATE
     Indication: ATRIAL FIBRILLATION
     Route: 048
     Dates: start: 20180404, end: 20180601
  17. EDOXABAN TOSILATE HYDRATE [Concomitant]
     Active Substance: EDOXABAN TOSYLATE
     Indication: ATRIAL FIBRILLATION
     Route: 065
     Dates: start: 20180602
  18. JANUVIA [Concomitant]
     Active Substance: SITAGLIPTIN PHOSPHATE
  19. NEXIUM [Suspect]
     Active Substance: ESOMEPRAZOLE MAGNESIUM
     Dosage: 20.0MG UNKNOWN
     Route: 048
  20. FEBURIC [Concomitant]
     Active Substance: FEBUXOSTAT
     Dosage: 20 MG NUMBER OF SEPARATE DOSAGES UNKNOWN
     Route: 048
  21. TRICHLORMETHIAZIDE [Concomitant]
     Active Substance: TRICHLORMETHIAZIDE
     Route: 065
  22. PREDONINE [Concomitant]
     Active Substance: PREDNISOLONE
     Dosage: 5 MG, NUMBER OF SEPARATE DOSAGES A DAY UNKNOWN
     Route: 048
  23. APIXABAN [Concomitant]
     Active Substance: APIXABAN
     Indication: ATRIAL FIBRILLATION
     Route: 065
     Dates: end: 20180226

REACTIONS (5)
  - Chest discomfort [Recovering/Resolving]
  - Chest pain [Recovering/Resolving]
  - Gout [Recovering/Resolving]
  - Chondrocalcinosis pyrophosphate [Recovering/Resolving]
  - Dehydration [Recovering/Resolving]

NARRATIVE: CASE EVENT DATE: 20180123
